FAERS Safety Report 24929627 (Version 1)
Quarter: 2025Q1

REPORT INFORMATION
  Report Type: Spontaneous
  Country: US (occurrence: US)
  Receive Date: 20250205
  Receipt Date: 20250205
  Transmission Date: 20250409
  Serious: No
  Sender: SANOFI AVENTIS
  Company Number: US-SA-2025SA034102

PATIENT
  Sex: Female

DRUGS (28)
  1. DUPIXENT [Suspect]
     Active Substance: DUPILUMAB
     Indication: Acute necrotising myelitis
  2. NAPROXEN [Concomitant]
     Active Substance: NAPROXEN
  3. HYDROXYZINE HYDROCHLORIDE [Concomitant]
     Active Substance: HYDROXYZINE HYDROCHLORIDE
  4. SEROQUEL XR [Concomitant]
     Active Substance: QUETIAPINE FUMARATE
  5. ZOLPIDEM TARTRATE [Concomitant]
     Active Substance: ZOLPIDEM TARTRATE
  6. AMBIEN [Concomitant]
     Active Substance: ZOLPIDEM TARTRATE
  7. ASPIRIN [Concomitant]
     Active Substance: ASPIRIN
  8. ESCITALOPRAM OXALATE [Concomitant]
     Active Substance: ESCITALOPRAM OXALATE
  9. GABAPENTIN [Concomitant]
     Active Substance: GABAPENTIN
  10. PAROXETINE HYDROCHLORIDE [Concomitant]
     Active Substance: PAROXETINE HYDROCHLORIDE
  11. VITAMIN B12 [Concomitant]
     Active Substance: CYANOCOBALAMIN
  12. LISINOPRIL [Concomitant]
     Active Substance: LISINOPRIL
  13. CARBAMAZEPINE [Concomitant]
     Active Substance: CARBAMAZEPINE
  14. LAMOTRIGINE [Concomitant]
     Active Substance: LAMOTRIGINE
  15. METFORMIN HYDROCHLORIDE [Concomitant]
     Active Substance: METFORMIN HYDROCHLORIDE
  16. VITAMIN D3 [Concomitant]
     Active Substance: CHOLECALCIFEROL
  17. PERCOCET [Concomitant]
     Active Substance: ACETAMINOPHEN\OXYCODONE HYDROCHLORIDE
  18. SEROQUEL [Concomitant]
     Active Substance: QUETIAPINE FUMARATE
  19. TRAZODONE HCL [Concomitant]
     Active Substance: TRAZODONE HYDROCHLORIDE
  20. AMANTADINE [Concomitant]
     Active Substance: AMANTADINE
  21. ATORVASTATIN [Concomitant]
     Active Substance: ATORVASTATIN
  22. BACLOFEN [Concomitant]
     Active Substance: BACLOFEN
  23. CLONAZEPAM [Concomitant]
     Active Substance: CLONAZEPAM
  24. GLIPIZIDE [Concomitant]
     Active Substance: GLIPIZIDE
  25. LACTULOSE [Concomitant]
     Active Substance: LACTULOSE
  26. LEVOTHYROXINE SODIUM [Concomitant]
     Active Substance: LEVOTHYROXINE SODIUM
  27. OMEPRAZOLE [Concomitant]
     Active Substance: OMEPRAZOLE
  28. OXYCODONE AND ACETAMINOPHEN [Concomitant]
     Active Substance: ACETAMINOPHEN\OXYCODONE HYDROCHLORIDE

REACTIONS (2)
  - Malaise [Unknown]
  - Product use in unapproved indication [Unknown]
